FAERS Safety Report 13176557 (Version 1)
Quarter: 2017Q1

REPORT INFORMATION
  Report Type: Spontaneous
  Country: US (occurrence: US)
  Receive Date: 20170201
  Receipt Date: 20170201
  Transmission Date: 20170428
  Serious: Yes (Hospitalization, Other)
  Sender: FDA-Public Use
  Company Number: US-JNJFOC-20170124627

PATIENT
  Age: 83 Year
  Sex: Male

DRUGS (2)
  1. LOPERAMIDE HYDROCHLORIDE. [Suspect]
     Active Substance: LOPERAMIDE HYDROCHLORIDE
     Route: 065
  2. LOPERAMIDE HYDROCHLORIDE. [Suspect]
     Active Substance: LOPERAMIDE HYDROCHLORIDE
     Indication: WEIGHT INCREASED
     Route: 065
     Dates: start: 20150419

REACTIONS (3)
  - Drug abuse [Unknown]
  - Electrocardiogram QRS complex abnormal [Recovered/Resolved]
  - Electrocardiogram QT interval abnormal [Recovered/Resolved]
